FAERS Safety Report 16285271 (Version 1)
Quarter: 2019Q2

REPORT INFORMATION
  Report Type: Spontaneous
  Country: US (occurrence: US)
  Receive Date: 20190506
  Receipt Date: 20190506
  Transmission Date: 20190711
  Serious: Yes (Hospitalization)
  Sender: FDA-Public Use
  Company Number: None

PATIENT
  Age: 79 Year
  Sex: Female

DRUGS (9)
  1. AMLODIPINE [Concomitant]
     Active Substance: AMLODIPINE BESYLATE
  2. CAPECITABINE. [Suspect]
     Active Substance: CAPECITABINE
     Indication: COLON CANCER
     Route: 048
     Dates: start: 20190301
  3. XALATAN [Concomitant]
     Active Substance: LATANOPROST
  4. HYDROCHLORTHIAZIDE [Concomitant]
     Active Substance: HYDROCHLOROTHIAZIDE
  5. TIMOLOL. [Concomitant]
     Active Substance: TIMOLOL
  6. POTASSIUM [Concomitant]
     Active Substance: POTASSIUM
  7. ROSUVASTATIN. [Concomitant]
     Active Substance: ROSUVASTATIN
  8. PREDNISOLONE. [Concomitant]
     Active Substance: PREDNISOLONE
  9. LEVOTHYROXINE. [Concomitant]
     Active Substance: LEVOTHYROXINE

REACTIONS (6)
  - Nausea [None]
  - Dehydration [None]
  - Abdominal pain [None]
  - Blood electrolytes abnormal [None]
  - Vomiting [None]
  - Gastroenteritis [None]
